FAERS Safety Report 4999804-6 (Version None)
Quarter: 2006Q2

REPORT INFORMATION
  Report Type: 
  Country: None (occurrence: None)
  Receive Date: 20060511
  Receipt Date: 20051216
  Transmission Date: 20061013
  Serious: Yes (Other)
  Sender: FDA-Public Use
  Company Number: US-SANOFI-SYNTHELABO-A03200504366

PATIENT
  Sex: Female

DRUGS (14)
  1. PLAVIX [Suspect]
     Indication: CATHETERISATION CARDIAC
     Route: 048
  2. PLAVIX [Suspect]
     Indication: CAROTID ARTERY DISEASE
     Route: 048
  3. MOBIC [Concomitant]
     Dosage: UNK
     Route: 048
  4. CIMETIDINE [Concomitant]
     Dosage: UNK
     Route: 048
  5. SINEMET [Concomitant]
     Dosage: UNK
     Route: 048
  6. ALLEGRA [Concomitant]
     Dosage: UNK
     Route: 048
  7. SYNTHROID [Concomitant]
     Route: 048
  8. FOLIC ACID [Concomitant]
     Dosage: UNK
     Route: 048
  9. PREMARIN [Concomitant]
     Dosage: UNK
     Route: 048
  10. IRON [Concomitant]
     Dosage: UNK
     Route: 048
  11. MUCINEX [Concomitant]
     Dosage: UNK
     Route: 048
  12. SENOKOT [Concomitant]
     Dosage: UNK
     Route: 048
  13. LACTULOSE [Concomitant]
     Dosage: UNK
     Route: 048
  14. UROSEPT K [Concomitant]
     Dosage: UNK
     Route: 065

REACTIONS (8)
  - ANAEMIA [None]
  - GASTRIC DISORDER [None]
  - INCREASED TENDENCY TO BRUISE [None]
  - JOINT SWELLING [None]
  - KIDNEY INFECTION [None]
  - NEPHROLITHIASIS [None]
  - OEDEMA PERIPHERAL [None]
  - WEIGHT DECREASED [None]
